FAERS Safety Report 25631752 (Version 1)
Quarter: 2025Q3

REPORT INFORMATION
  Report Type: Spontaneous
  Country: US (occurrence: US)
  Receive Date: 20250801
  Receipt Date: 20250801
  Transmission Date: 20251020
  Serious: No
  Sender: GLAXOSMITHKLINE
  Company Number: US-GSK-US2025AMR084367

PATIENT
  Sex: Female

DRUGS (3)
  1. BENLYSTA [Suspect]
     Active Substance: BELIMUMAB
     Indication: Systemic lupus erythematosus
     Dosage: 200 MG, WE
     Dates: start: 202310
  2. TYMLOS [Concomitant]
     Active Substance: ABALOPARATIDE
     Indication: Antiphospholipid syndrome
  3. TYMLOS [Concomitant]
     Active Substance: ABALOPARATIDE
     Indication: Thrombocytopenia

REACTIONS (1)
  - Iodine allergy [Unknown]
